FAERS Safety Report 7075211-X (Version None)
Quarter: 2010Q4

REPORT INFORMATION
  Report Type: 
  Country: None (occurrence: None)
  Receive Date: 20101030
  Receipt Date: 20100517
  Transmission Date: 20110411
  Serious: No
  Sender: FDA-Public Use
  Company Number: US-WYE-H15300210

PATIENT

DRUGS (1)
  1. ADVIL PM [Suspect]
     Dosage: TOOK 4 ADVIL PM X 1
     Route: 048

REACTIONS (2)
  - MALAISE [None]
  - OVERDOSE [None]
